FAERS Safety Report 13689805 (Version 3)
Quarter: 2019Q1

REPORT INFORMATION
  Report Type: Spontaneous
  Country: US (occurrence: US)
  Receive Date: 20170626
  Receipt Date: 20190328
  Transmission Date: 20190417
  Serious: No
  Sender: FDA-Public Use
  Company Number: US-PFIZER INC-2016123788

PATIENT
  Age: 11 Year
  Sex: Female
  Weight: 24 kg

DRUGS (15)
  1. GENOTROPIN [Suspect]
     Active Substance: SOMATROPIN
     Indication: GROWTH FAILURE
     Dosage: 1.2 ML, DAILY
     Route: 058
  2. MELATONIN [Concomitant]
     Active Substance: MELATONIN
     Dosage: 5 MG, 1X/DAY
  3. GENOTROPIN [Suspect]
     Active Substance: SOMATROPIN
     Indication: SMALL FOR DATES BABY
     Dosage: 1.2 MG, 1X/DAY (7 DAYS/WEEK)
     Route: 058
  4. GENOTROPIN [Suspect]
     Active Substance: SOMATROPIN
     Indication: BODY HEIGHT BELOW NORMAL
     Dosage: 1.4 ML, 1X/DAY
     Route: 058
  5. GENOTROPIN [Suspect]
     Active Substance: SOMATROPIN
     Indication: SILVER-RUSSELL SYNDROME
     Dosage: 1 MG, 1X/DAY (7 DAYS/WEEK)
     Route: 058
  6. ONFI [Concomitant]
     Active Substance: CLOBAZAM
     Dosage: 20 MG, 1X/DAY
  7. VIMPAT [Concomitant]
     Active Substance: LACOSAMIDE
     Indication: SEIZURE
     Dosage: 100 MG, DAILY (1 AM/ 1 1/2 PM)
  8. FISH OIL [Concomitant]
     Active Substance: FISH OIL
     Dosage: UNK
  9. GENOTROPIN [Suspect]
     Active Substance: SOMATROPIN
     Dosage: UNK
  10. VIMPAT [Concomitant]
     Active Substance: LACOSAMIDE
     Dosage: 75 MG, UNK
  11. GENOTROPIN [Suspect]
     Active Substance: SOMATROPIN
     Indication: BLOOD GROWTH HORMONE
     Dosage: 1.6 MG, DAILY
     Route: 058
     Dates: start: 201305
  12. GENOTROPIN [Suspect]
     Active Substance: SOMATROPIN
     Dosage: 2.6 MG, DAILY
     Dates: start: 20130516
  13. ZONEGRAN [Concomitant]
     Active Substance: ZONISAMIDE
     Dosage: 50 MG, 2X/DAY
  14. GENOTROPIN [Suspect]
     Active Substance: SOMATROPIN
     Dosage: 0.35 MG/KG, WEEKLY
     Route: 058
  15. VITAMIN D3 [Concomitant]
     Active Substance: CHOLECALCIFEROL
     Dosage: UNK

REACTIONS (5)
  - Product dose omission [Unknown]
  - Scoliosis [Unknown]
  - Pain in extremity [Unknown]
  - Headache [Unknown]
  - Arthralgia [Unknown]
